FAERS Safety Report 7256788-8 (Version None)
Quarter: 2011Q1

REPORT INFORMATION
  Report Type: 
  Country: None (occurrence: None)
  Receive Date: 20110129
  Receipt Date: 20100713
  Transmission Date: 20110831
  Serious: No
  Sender: FDA-Public Use
  Company Number: US-ABBOTT-10P-163-0656952-00

PATIENT
  Age: 34 Year
  Sex: Female

DRUGS (3)
  1. PRILOSEC [Concomitant]
     Indication: REFLUX GASTRITIS
  2. TACLONEX [Concomitant]
     Indication: PSORIASIS
  3. HUMIRA [Suspect]
     Indication: PSORIASIS
     Dates: start: 20100501

REACTIONS (1)
  - ACNE [None]
